FAERS Safety Report 15715996 (Version 2)
Quarter: 2018Q4

REPORT INFORMATION
  Report Type: Report from Study
  Country: US (occurrence: US)
  Receive Date: 20181213
  Receipt Date: 20181224
  Transmission Date: 20190205
  Serious: Yes (Hospitalization)
  Sender: FDA-Public Use
  Company Number: US-BRISTOL-MYERS SQUIBB COMPANY-BMS-2018-116396

PATIENT
  Age: 51 Year
  Sex: Male

DRUGS (2)
  1. NIVOLUMAB [Suspect]
     Active Substance: NIVOLUMAB
     Indication: PROPHYLAXIS
     Dosage: 98 MG, UNK
     Route: 042
     Dates: start: 20181116, end: 20181116
  2. IPILIMUMAB [Suspect]
     Active Substance: IPILIMUMAB
     Indication: PROPHYLAXIS
     Dosage: 295 MG, UNK
     Route: 042
     Dates: start: 20181116, end: 20181116

REACTIONS (1)
  - Lymphadenitis [Recovered/Resolved]

NARRATIVE: CASE EVENT DATE: 20181207
